FAERS Safety Report 15850566 (Version 5)
Quarter: 2019Q4

REPORT INFORMATION
  Report Type: Spontaneous
  Country: JP (occurrence: JP)
  Receive Date: 20190121
  Receipt Date: 20191223
  Transmission Date: 20200122
  Serious: Yes (Death, Life-Threatening, Hospitalization, Other)
  Sender: FDA-Public Use
  Company Number: JP-009507513-1901JPN001436J

PATIENT
  Age: 84 Year
  Sex: Female
  Weight: 42 kg

DRUGS (2)
  1. JANUVIA [Suspect]
     Active Substance: SITAGLIPTIN PHOSPHATE
     Indication: TYPE 2 DIABETES MELLITUS
     Dosage: 25 MILLIGRAM, QD
     Route: 048
     Dates: end: 20181118
  2. INSULIN [Concomitant]
     Active Substance: INSULIN NOS
     Dosage: UNK
     Route: 065

REACTIONS (9)
  - Pseudomembranous colitis [Not Recovered/Not Resolved]
  - Clostridium difficile colitis [Unknown]
  - Abdominal pain upper [Unknown]
  - Acquired haemophilia [Fatal]
  - Fall [Unknown]
  - Fall [Unknown]
  - Multiple organ dysfunction syndrome [Fatal]
  - Cerebral haemorrhage [Fatal]
  - Vasculitis [Recovering/Resolving]

NARRATIVE: CASE EVENT DATE: 20181007
